FAERS Safety Report 11898794 (Version 1)
Quarter: 2016Q1

REPORT INFORMATION
  Report Type: Spontaneous
  Country: US (occurrence: None)
  Receive Date: 20160107
  Receipt Date: 20160107
  Transmission Date: 20160526
  Serious: No
  Sender: FDA-Public Use
  Company Number: None

PATIENT
  Age: 67 Year
  Sex: Female

DRUGS (1)
  1. HUMIRA [Suspect]
     Active Substance: ADALIMUMAB
     Indication: HIDRADENITIS
     Dosage: 4 PENS (160 MG) ON DAY 1 THAN 2 PENS, 15 DAYS
     Route: 058
     Dates: start: 20151228

REACTIONS (3)
  - Dizziness [None]
  - Tremor [None]
  - Blood glucose decreased [None]

NARRATIVE: CASE EVENT DATE: 20160104
